FAERS Safety Report 11575392 (Version 1)
Quarter: 2015Q3

REPORT INFORMATION
  Report Type: Spontaneous
  Country: US (occurrence: None)
  Receive Date: 20150929
  Receipt Date: 20150929
  Transmission Date: 20151125
  Serious: Yes (Disabling)
  Sender: FDA-Public Use
  Company Number: None

PATIENT
  Age: 60 Year
  Sex: Male
  Weight: 111.13 kg

DRUGS (15)
  1. CIPROFLOXACIN. [Suspect]
     Active Substance: CIPROFLOXACIN
     Indication: PROSTATITIS
  2. FOLIC ACID. [Concomitant]
     Active Substance: FOLIC ACID
  3. FISH OIL [Concomitant]
     Active Substance: FISH OIL
  4. PROBIOTIC [Concomitant]
     Active Substance: PROBIOTICS NOS
  5. METOPROLOL [Concomitant]
     Active Substance: METOPROLOL
  6. ZYRTEC [Concomitant]
     Active Substance: CETIRIZINE HYDROCHLORIDE
  7. IMODIUM [Concomitant]
     Active Substance: LOPERAMIDE HYDROCHLORIDE
  8. VITAMINS B6 [Concomitant]
  9. ENTERIC ASPIRIN [Concomitant]
     Active Substance: ASPIRIN
  10. VITAMINS B12 [Concomitant]
  11. VITAMINS C [Concomitant]
  12. VITAMINS E [Concomitant]
  13. ZANTAC [Concomitant]
     Active Substance: RANITIDINE HYDROCHLORIDE
  14. DIGOXIN. [Concomitant]
     Active Substance: DIGOXIN
  15. VITAMINS D [Concomitant]

REACTIONS (5)
  - Pain [None]
  - Neuropathy peripheral [None]
  - Tendon injury [None]
  - Muscle injury [None]
  - Fatigue [None]

NARRATIVE: CASE EVENT DATE: 20140922
